FAERS Safety Report 6656371-9 (Version None)
Quarter: 2010Q1

REPORT INFORMATION
  Report Type: 
  Country: None (occurrence: None)
  Receive Date: 20100326
  Receipt Date: 20100326
  Transmission Date: 20100710
  Serious: Yes (Life-Threatening)
  Sender: FDA-Public Use
  Company Number: None

PATIENT
  Age: 82 Year
  Sex: Male

DRUGS (1)
  1. OMNIPAQUE 300 [Suspect]
     Indication: DYSPNOEA
     Dosage: 130 CC ONCE IV PUSH
     Route: 042
     Dates: start: 20100323, end: 20100323

REACTIONS (2)
  - CARDIO-RESPIRATORY ARREST [None]
  - UNRESPONSIVE TO STIMULI [None]
